FAERS Safety Report 16393299 (Version 1)
Quarter: 2019Q2

REPORT INFORMATION
  Report Type: Spontaneous
  Country: US (occurrence: US)
  Receive Date: 20190430
  Receipt Date: 20190430
  Transmission Date: 20190711
  Serious: No
  Sender: FDA-Public Use
  Company Number: None

PATIENT
  Age: 33 Year
  Sex: Male
  Weight: 116.12 kg

DRUGS (1)
  1. HEMP AND OIL FULL SPECTRUM HEMP [Suspect]
     Active Substance: CANNABIS SATIVA SEED OIL
     Indication: ABDOMINAL PAIN UPPER

REACTIONS (6)
  - Vomiting [None]
  - Chest pain [None]
  - Nausea [None]
  - Diarrhoea [None]
  - Fatigue [None]
  - Dyspnoea [None]

NARRATIVE: CASE EVENT DATE: 20190425
